FAERS Safety Report 7090889-2 (Version None)
Quarter: 2010Q4

REPORT INFORMATION
  Report Type: 
  Country: None (occurrence: None)
  Receive Date: 20101109
  Receipt Date: 20101029
  Transmission Date: 20110411
  Serious: Yes (Other)
  Sender: FDA-Public Use
  Company Number: GB-AMGEN-QUU435182

PATIENT

DRUGS (9)
  1. ENBREL [Suspect]
     Indication: RHEUMATOID ARTHRITIS
     Dosage: 50 MG, QWK
     Route: 058
     Dates: start: 20061123
  2. ENBREL [Suspect]
     Route: 058
     Dates: start: 20061123
  3. TRAMADOL HCL [Concomitant]
     Indication: RHEUMATOID ARTHRITIS
     Dosage: 50MG, FREQUENCY UNKNOWN
     Route: 048
  4. TRAMADOL HCL [Concomitant]
     Indication: PAIN
  5. CETIRIZINE HCL [Concomitant]
     Indication: HYPERSENSITIVITY
     Route: 048
  6. WARFARIN [Concomitant]
     Indication: CEREBROVASCULAR ACCIDENT
     Dosage: VARIABLE- AS PER INR
     Route: 048
     Dates: start: 20001101
  7. WARFARIN [Concomitant]
     Indication: FACTOR V LEIDEN MUTATION
  8. AMITRIPTYLINE HCL [Concomitant]
     Indication: NEURALGIA
     Dosage: 10MG NOCTE
     Route: 048
  9. PREDNISOLONE [Concomitant]
     Indication: RHEUMATOID ARTHRITIS
     Route: 048

REACTIONS (1)
  - CERVICAL DYSPLASIA [None]
